FAERS Safety Report 14929311 (Version 1)
Quarter: 2018Q2

REPORT INFORMATION
  Report Type: Spontaneous
  Country: FR (occurrence: FR)
  Receive Date: 20180523
  Receipt Date: 20180523
  Transmission Date: 20180711
  Serious: Yes (Hospitalization)
  Sender: FDA-Public Use
  Company Number: FR-TEVA-2018-FR-896529

PATIENT
  Age: 69 Year
  Sex: Male

DRUGS (2)
  1. ALLOPURINOL. [Suspect]
     Active Substance: ALLOPURINOL
     Indication: PAIN IN EXTREMITY
     Route: 048
     Dates: start: 20160622, end: 20160709
  2. COLCHICINE. [Suspect]
     Active Substance: COLCHICINE
     Indication: PAIN IN EXTREMITY
     Route: 048
     Dates: start: 20160622, end: 20160709

REACTIONS (17)
  - Rash papular [Recovered/Resolved]
  - Oropharyngeal discomfort [Recovered/Resolved]
  - Foreign body sensation in eyes [Recovered/Resolved]
  - Oral mucosa erosion [Recovered/Resolved]
  - Conjunctival hyperaemia [Recovered/Resolved]
  - Scrotal erythema [Recovered/Resolved]
  - Cheilitis [Recovered/Resolved]
  - Nasal crusting [Recovered/Resolved]
  - Genital lesion [Recovered/Resolved]
  - Punctate keratitis [Recovered/Resolved]
  - Genital ulceration [Recovered/Resolved]
  - Oral disorder [Recovered/Resolved]
  - Conjunctival hyperaemia [Recovered/Resolved]
  - Genital erosion [Recovered/Resolved]
  - Asthenia [Recovered/Resolved]
  - Lip haemorrhage [Recovered/Resolved]
  - Lip erosion [Recovered/Resolved]

NARRATIVE: CASE EVENT DATE: 201607
